FAERS Safety Report 24684084 (Version 2)
Quarter: 2025Q1

REPORT INFORMATION
  Report Type: Spontaneous
  Country: JP (occurrence: JP)
  Receive Date: 20241202
  Receipt Date: 20250317
  Transmission Date: 20250409
  Serious: Yes (Other)
  Sender: NOVARTIS
  Company Number: JP-002147023-NVSJ2024JP013904

PATIENT
  Age: 74 Year
  Sex: Male
  Weight: 46.3 kg

DRUGS (16)
  1. ENTRESTO [Suspect]
     Active Substance: SACUBITRIL\VALSARTAN
     Indication: Cardiac failure chronic
     Route: 048
     Dates: start: 20240904, end: 20240914
  2. AMIODARONE HYDROCHLORIDE [Concomitant]
     Active Substance: AMIODARONE HYDROCHLORIDE
     Indication: Product used for unknown indication
     Route: 065
  3. FUROSEMIDE [Concomitant]
     Active Substance: FUROSEMIDE
     Indication: Product used for unknown indication
     Route: 065
  4. FUROSEMIDE [Concomitant]
     Active Substance: FUROSEMIDE
     Route: 065
  5. BISOPROLOL [Concomitant]
     Active Substance: BISOPROLOL
     Indication: Product used for unknown indication
     Route: 065
  6. DIGOXIN [Concomitant]
     Active Substance: DIGOXIN
     Indication: Product used for unknown indication
     Route: 065
  7. TOLVAPTAN [Concomitant]
     Active Substance: TOLVAPTAN
     Indication: Product used for unknown indication
     Route: 065
  8. TOLVAPTAN [Concomitant]
     Active Substance: TOLVAPTAN
     Route: 065
  9. ROSUVASTATIN [Concomitant]
     Active Substance: ROSUVASTATIN
     Indication: Product used for unknown indication
     Route: 065
  10. ASPIRIN [Concomitant]
     Active Substance: ASPIRIN
     Indication: Product used for unknown indication
     Route: 065
  11. Senna alexandrina leaf powder [Concomitant]
     Indication: Product used for unknown indication
     Route: 065
  12. LANSOPRAZOLE [Concomitant]
     Active Substance: LANSOPRAZOLE
     Indication: Product used for unknown indication
     Route: 065
  13. SITAGLIPTIN [Concomitant]
     Active Substance: SITAGLIPTIN
     Indication: Product used for unknown indication
     Route: 065
  14. PIMOBENDAN [Concomitant]
     Active Substance: PIMOBENDAN
     Indication: Product used for unknown indication
     Route: 065
  15. PIMOBENDAN [Concomitant]
     Active Substance: PIMOBENDAN
     Route: 065
  16. DAPAGLIFLOZIN [Concomitant]
     Active Substance: DAPAGLIFLOZIN
     Indication: Product used for unknown indication
     Route: 065

REACTIONS (7)
  - Blood pressure decreased [Recovering/Resolving]
  - Neurogenic bladder [Unknown]
  - Nocturia [Unknown]
  - Delirium [Unknown]
  - Malaise [Recovered/Resolved]
  - Dyspnoea [Unknown]
  - Feeling abnormal [Unknown]
